FAERS Safety Report 10702952 (Version 1)
Quarter: 2020Q3

REPORT INFORMATION
  Report Type: Other
  Country: GB (occurrence: GB)
  Receive Date: 20150110
  Receipt Date: 20150110
  Transmission Date: 20201104
  Serious: Yes (Other)
  Sender: FDA-Public Use
  Company Number: GB-MYLANLABS-2015M1000115

PATIENT

DRUGS (4)
  1. IBUPROFEN. [Concomitant]
     Active Substance: IBUPROFEN
  2. IBANDRONIC ACID. [Suspect]
     Active Substance: IBANDRONIC ACID
     Indication: OSTEOPOROSIS
     Dosage: 150 MG, UNK
     Route: 048
     Dates: start: 20141102, end: 20141102
  3. ACLIDINIUM BROMIDE. [Concomitant]
     Active Substance: ACLIDINIUM BROMIDE
     Dosage: UNK
     Route: 055
  4. BECLOMETHASONE DIPROPIONATE        /00212602/ [Concomitant]

REACTIONS (9)
  - Decreased appetite [Unknown]
  - Chills [Recovered/Resolved]
  - Abdominal distension [Unknown]
  - Nausea [Unknown]
  - Abdominal pain [Recovered/Resolved with Sequelae]
  - Back pain [Recovered/Resolved]
  - Bladder pain [Recovered/Resolved with Sequelae]
  - Arthralgia [Recovered/Resolved]
  - Night sweats [Recovered/Resolved]

NARRATIVE: CASE EVENT DATE: 20141109
